FAERS Safety Report 26182681 (Version 1)
Quarter: 2025Q4

REPORT INFORMATION
  Report Type: Spontaneous
  Country: US (occurrence: US)
  Receive Date: 20251221
  Receipt Date: 20251221
  Transmission Date: 20260118
  Serious: No
  Sender: ABBVIE
  Company Number: US-ABBVIE-6598536

PATIENT
  Sex: Female

DRUGS (1)
  1. SKYRIZI [Suspect]
     Active Substance: RISANKIZUMAB-RZAA
     Indication: Crohn^s disease
     Dosage: FORM STRENGTH 180 MILLIGRAM
     Route: 058

REACTIONS (3)
  - Frequent bowel movements [Unknown]
  - Drug ineffective [Not Recovered/Not Resolved]
  - Crohn^s disease [Unknown]
